FAERS Safety Report 7474612-5 (Version None)
Quarter: 2011Q2

REPORT INFORMATION
  Report Type: 
  Country: None (occurrence: None)
  Receive Date: 20110503
  Receipt Date: 20110425
  Transmission Date: 20111010
  Serious: Yes (Hospitalization)
  Sender: FDA-Public Use
  Company Number: 2011S1000317

PATIENT
  Age: 67 Year
  Sex: Male
  Weight: 71.7 kg

DRUGS (10)
  1. MERISLON [Concomitant]
  2. TIZANIDINE HYDROCHLORIDE [Concomitant]
  3. ADALAT CC [Concomitant]
  4. DEANOSART [Concomitant]
  5. ASPIRIN [Concomitant]
  6. DIOVAN [Concomitant]
  7. PLAVIX [Concomitant]
  8. SOLETON [Concomitant]
  9. LIVALO [Suspect]
     Indication: DYSLIPIDAEMIA
     Dosage: 2 MG, 1X, PO
     Route: 048
     Dates: start: 20110210, end: 20110305
  10. MAGNESIUM SULFATE [Concomitant]

REACTIONS (4)
  - DYSSTASIA [None]
  - WHITE BLOOD CELL COUNT INCREASED [None]
  - PAIN IN EXTREMITY [None]
  - RHABDOMYOLYSIS [None]
